FAERS Safety Report 13722288 (Version 3)
Quarter: 2017Q3

REPORT INFORMATION
  Report Type: Spontaneous
  Country: DE (occurrence: DE)
  Receive Date: 20170706
  Receipt Date: 20170919
  Transmission Date: 20171127
  Serious: Yes (Hospitalization, Other)
  Sender: FDA-Public Use
  Company Number: PHHY2017DE096736

PATIENT
  Age: 10 Year
  Sex: Female
  Weight: 30 kg

DRUGS (5)
  1. PENICILLIN NOS [Concomitant]
     Active Substance: PENICILLIN
     Indication: ASPLENIA
     Dosage: 500000 U, QD
     Route: 048
  2. SIKLOS [Concomitant]
     Active Substance: HYDROXYUREA
     Indication: PAIN
     Dosage: 1000 MG, QD
     Route: 048
  3. EXJADE [Suspect]
     Active Substance: DEFERASIROX
     Indication: HAEMOSIDEROSIS
  4. MOVICOL [Concomitant]
     Active Substance: POLYETHYLENE GLYCOL 3350\POTASSIUM CHLORIDE\SODIUM BICARBONATE\SODIUM CHLORIDE
     Indication: CONSTIPATION
     Dosage: 2 DF, QD (1-2 SACHETS, DAILY)
     Route: 048
     Dates: start: 201703
  5. EXJADE [Suspect]
     Active Substance: DEFERASIROX
     Indication: THALASSAEMIA BETA
     Dosage: 500 MG, QD
     Route: 048
     Dates: start: 20160106, end: 20170628

REACTIONS (9)
  - Nephropathy [Unknown]
  - Liver function test abnormal [Recovered/Resolved]
  - Nausea [Unknown]
  - Fatigue [Unknown]
  - Hepatic failure [Recovered/Resolved]
  - Serum ferritin decreased [Recovered/Resolved]
  - Hypoglycaemia [Recovering/Resolving]
  - Transaminases increased [Recovering/Resolving]
  - Abdominal pain [Unknown]

NARRATIVE: CASE EVENT DATE: 20170609
